FAERS Safety Report 11807949 (Version 1)
Quarter: 2015Q4

REPORT INFORMATION
  Report Type: Report from Study
  Country: BE (occurrence: BE)
  Receive Date: 20151207
  Receipt Date: 20151207
  Transmission Date: 20160305
  Serious: Yes (Hospitalization)
  Sender: FDA-Public Use
  Company Number: BE-ABBVIE-15P-013-1512211-00

PATIENT
  Sex: Male

DRUGS (4)
  1. PROLOPA [Concomitant]
     Active Substance: BENSERAZIDE\LEVODOPA
     Indication: PRODUCT USED FOR UNKNOWN INDICATION
     Dosage: DOSE STRENGTH= 200MG/ 50MG; UNIT DOSE= 1 TABLET
     Route: 065
  2. DUODOPA [Suspect]
     Active Substance: CARBIDOPA\LEVODOPA
     Indication: PARKINSON^S DISEASE
     Dosage: UNKNOWN
     Route: 050
     Dates: start: 20150216, end: 20150218
  3. DUODOPA [Suspect]
     Active Substance: CARBIDOPA\LEVODOPA
     Dosage: AM=8ML; CD=2.5ML/HR DURING 16HRS; ED=2MG
     Route: 050
     Dates: start: 20150218
  4. PROLOPA [Concomitant]
     Active Substance: BENSERAZIDE\LEVODOPA
     Dosage: DOSE STRENGTH= 200MG/ 50MG 1 OR 2/NIGHT IF NECESSARY

REACTIONS (2)
  - Humerus fracture [Unknown]
  - Fall [Unknown]
